FAERS Safety Report 7275996-3 (Version None)
Quarter: 2011Q1

REPORT INFORMATION
  Report Type: 
  Country: None (occurrence: None)
  Receive Date: 20110204
  Receipt Date: 20110125
  Transmission Date: 20110831
  Serious: Yes (Hospitalization)
  Sender: FDA-Public Use
  Company Number: B0688083A

PATIENT
  Age: 35 Year
  Sex: Female

DRUGS (7)
  1. LULLAN [Concomitant]
  2. ALESION [Concomitant]
  3. RIVOTRIL [Concomitant]
  4. LAMOTRIGINE [Suspect]
     Indication: BIPOLAR DISORDER
     Route: 048
     Dates: start: 20100301
  5. HALCION [Concomitant]
  6. LIMAS [Concomitant]
  7. PURSENNID [Concomitant]

REACTIONS (14)
  - EOSINOPHIL COUNT INCREASED [None]
  - WHITE BLOOD CELL COUNT INCREASED [None]
  - RENAL IMPAIRMENT [None]
  - ALTERED STATE OF CONSCIOUSNESS [None]
  - FACE OEDEMA [None]
  - DRUG RASH WITH EOSINOPHILIA AND SYSTEMIC SYMPTOMS [None]
  - PYREXIA [None]
  - DERMATITIS EXFOLIATIVE [None]
  - ERYTHEMA [None]
  - MUSCLE CONTRACTURE [None]
  - NEUROLEPTIC MALIGNANT SYNDROME [None]
  - LYMPHADENOPATHY [None]
  - BLOOD CREATINE PHOSPHOKINASE INCREASED [None]
  - DYSKINESIA [None]
